FAERS Safety Report 20336310 (Version 3)
Quarter: 2023Q4

REPORT INFORMATION
  Report Type: Report from Study
  Country: GB (occurrence: GB)
  Receive Date: 20220114
  Receipt Date: 20231013
  Transmission Date: 20240110
  Serious: Yes (Hospitalization)
  Sender: FDA-Public Use
  Company Number: GB-TEVA-2022-GB-1998656

PATIENT
  Sex: Female

DRUGS (1)
  1. AJOVY [Suspect]
     Active Substance: FREMANEZUMAB-VFRM
     Indication: Product used for unknown indication
     Dosage: FORM STRENGTH: 225MG/1.5ML, DOSE: 225MILLIGRAM MONTHLY
     Route: 065

REACTIONS (3)
  - COVID-19 [Unknown]
  - Illness [Unknown]
  - Intentional dose omission [Unknown]
